FAERS Safety Report 21499619 (Version 1)
Quarter: 2022Q4

REPORT INFORMATION
  Report Type: Spontaneous
  Country: US (occurrence: US)
  Receive Date: 20221024
  Receipt Date: 20221024
  Transmission Date: 20230113
  Serious: No
  Sender: FDA-Public Use
  Company Number: US-NEUROCRINE BIOSCIENCES INC.-2022NBI07412

PATIENT

DRUGS (2)
  1. INGREZZA [Suspect]
     Active Substance: VALBENAZINE
     Indication: Tardive dyskinesia
     Dosage: 40 MILLIGRAM, FOR 2 DAYS
     Route: 065
  2. HALDOL [Concomitant]
     Active Substance: HALOPERIDOL

REACTIONS (2)
  - Salivary hypersecretion [Unknown]
  - Sedation [Unknown]
